FAERS Safety Report 5305682-8 (Version None)
Quarter: 2007Q2

REPORT INFORMATION
  Report Type: 
  Country: None (occurrence: None)
  Receive Date: 20070424
  Receipt Date: 20070315
  Transmission Date: 20071010
  Serious: No
  Sender: FDA-Public Use
  Company Number: US-JNJFOC-20070403116

PATIENT
  Sex: Female

DRUGS (9)
  1. INVEGA [Suspect]
     Route: 048
  2. INVEGA [Suspect]
     Indication: SCHIZOPHRENIA
     Route: 048
  3. REQUIP [Concomitant]
     Route: 048
  4. DEPAKOTE [Concomitant]
     Route: 048
  5. COGENTIN [Concomitant]
     Route: 048
  6. LOPERAMID [Concomitant]
     Indication: DIARRHOEA
     Route: 048
  7. ACTOS [Concomitant]
     Route: 048
  8. FOLIC ACID [Concomitant]
     Route: 048
  9. TRAZODONE HCL [Concomitant]
     Route: 048

REACTIONS (1)
  - EXTRAPYRAMIDAL DISORDER [None]
